FAERS Safety Report 19511484 (Version 2)
Quarter: 2021Q3

REPORT INFORMATION
  Report Type: Other
  Country: US (occurrence: US)
  Receive Date: 20210709
  Receipt Date: 20210712
  Transmission Date: 20211014
  Serious: Yes (Death, Other)
  Sender: FDA-Public Use
  Company Number: US-ROCHE-2865318

PATIENT
  Sex: Male

DRUGS (21)
  1. CELLCEPT [Suspect]
     Active Substance: MYCOPHENOLATE MOFETIL\MYCOPHENOLATE MOFETIL HYDROCHLORIDE
     Indication: KIDNEY TRANSPLANT REJECTION
     Dosage: 250 MG 3 CAPSULES BID
     Route: 048
     Dates: end: 20200202
  2. LOSARTAN. [Concomitant]
     Active Substance: LOSARTAN
  3. DECADRON [Concomitant]
     Active Substance: DEXAMETHASONE
     Route: 048
  4. STIOLTO RESPIMAT [Concomitant]
     Active Substance: OLODATEROL HYDROCHLORIDE\TIOTROPIUM BROMIDE MONOHYDRATE
     Dosage: 2 PUFF BY INHALATION?2.5?2.5 MCG/ACUTATION MIST
  5. CELLCEPT [Suspect]
     Active Substance: MYCOPHENOLATE MOFETIL\MYCOPHENOLATE MOFETIL HYDROCHLORIDE
     Route: 048
     Dates: start: 20201227
  6. COREG [Concomitant]
     Active Substance: CARVEDILOL
     Route: 048
  7. PACLITAXEL. [Concomitant]
     Active Substance: PACLITAXEL
     Dosage: 6 MG/ML
     Route: 042
  8. PHENERGAN [Concomitant]
     Active Substance: PROMETHAZINE HYDROCHLORIDE
  9. BELATACEPT [Concomitant]
     Active Substance: BELATACEPT
     Indication: SKIN CANCER
     Dates: start: 20200115
  10. ZYLOPRIM [Concomitant]
     Active Substance: ALLOPURINOL
     Route: 048
  11. VITAMIN D3 [Concomitant]
     Active Substance: CHOLECALCIFEROL
     Route: 048
  12. DEXTROSE. [Concomitant]
     Active Substance: DEXTROSE
  13. PRAVACHOL [Concomitant]
     Active Substance: PRAVASTATIN SODIUM
     Route: 048
  14. CARAFATE [Concomitant]
     Active Substance: SUCRALFATE
  15. COREG [Concomitant]
     Active Substance: CARVEDILOL
     Route: 048
  16. PROAIR HFA [Concomitant]
     Active Substance: ALBUTEROL SULFATE
     Dosage: 90 M CG/ACUTATION. ?2 PUFF
  17. CELLCEPT [Suspect]
     Active Substance: MYCOPHENOLATE MOFETIL\MYCOPHENOLATE MOFETIL HYDROCHLORIDE
     Route: 048
     Dates: start: 20201212
  18. ZOFRAN [Concomitant]
     Active Substance: ONDANSETRON HYDROCHLORIDE
  19. ALOXI [Concomitant]
     Active Substance: PALONOSETRON HYDROCHLORIDE
     Dosage: 0.25 MG/5 ML
     Route: 042
  20. ASPIRIN. [Concomitant]
     Active Substance: ASPIRIN
     Route: 048
  21. CARBOPLATIN. [Concomitant]
     Active Substance: CARBOPLATIN
     Dosage: 10 MG/ML
     Route: 042

REACTIONS (4)
  - Off label use [Unknown]
  - Lung neoplasm malignant [Fatal]
  - Cytomegalovirus colitis [Unknown]
  - Chronic obstructive pulmonary disease [Unknown]
